FAERS Safety Report 26191352 (Version 1)
Quarter: 2025Q4

REPORT INFORMATION
  Report Type: Spontaneous
  Country: CN (occurrence: CN)
  Receive Date: 20251223
  Receipt Date: 20251223
  Transmission Date: 20260118
  Serious: Yes (Other)
  Sender: SANDOZ
  Company Number: CN-002147023-NVSC2025CN194152

PATIENT
  Age: 70 Year
  Sex: Female
  Weight: 60 kg

DRUGS (1)
  1. TOBRADEX [Suspect]
     Active Substance: DEXAMETHASONE\TOBRAMYCIN
     Indication: Post procedural infection
     Dosage: 1.000 G, QD
     Route: 047
     Dates: start: 20251202, end: 20251202

REACTIONS (4)
  - Conjunctival oedema [Recovering/Resolving]
  - Lacrimation increased [Recovering/Resolving]
  - Conjunctival hyperaemia [Recovering/Resolving]
  - Eye pruritus [Recovering/Resolving]

NARRATIVE: CASE EVENT DATE: 20251202
